FAERS Safety Report 22101397 (Version 1)
Quarter: 2023Q1

REPORT INFORMATION
  Report Type: Report from Study
  Country: US (occurrence: US)
  Receive Date: 20230316
  Receipt Date: 20230316
  Transmission Date: 20230418
  Serious: Yes (Hospitalization, Other)
  Sender: FDA-Public Use
  Company Number: US-ABBVIE-4342942

PATIENT
  Age: 54 Year
  Sex: Female

DRUGS (1)
  1. SKYRIZI [Suspect]
     Active Substance: RISANKIZUMAB-RZAA
     Indication: Psoriasis
     Dosage: FORM STRENGTH: 150 MILLIGRAM
     Route: 058
     Dates: start: 20220401, end: 20221130

REACTIONS (6)
  - Hip arthroplasty [Unknown]
  - Impaired healing [Unknown]
  - Gastric operation [Unknown]
  - Wound [Unknown]
  - Surgery [Unknown]
  - Wound [Unknown]

NARRATIVE: CASE EVENT DATE: 20220801
